FAERS Safety Report 10291545 (Version 2)
Quarter: 2014Q3

REPORT INFORMATION
  Report Type: Spontaneous
  Country: US (occurrence: US)
  Receive Date: 20140710
  Receipt Date: 20140710
  Transmission Date: 20150326
  Serious: No
  Sender: FDA-Public Use
  Company Number: US-PURDUE-USA-2013-0104435

PATIENT
  Age: 55 Year
  Sex: Male
  Weight: 92.97 kg

DRUGS (1)
  1. BUTRANS [Suspect]
     Active Substance: BUPRENORPHINE
     Indication: JOINT INJURY
     Dosage: 5 MCG/HR, WEEKLY
     Route: 062
     Dates: start: 20130703, end: 20130709

REACTIONS (5)
  - Drug administered at inappropriate site [Unknown]
  - Euphoric mood [Recovered/Resolved]
  - Nausea [Recovered/Resolved]
  - Dizziness [Unknown]
  - Priapism [Recovered/Resolved]

NARRATIVE: CASE EVENT DATE: 20130709
